FAERS Safety Report 12984901 (Version 1)
Quarter: 2016Q4

REPORT INFORMATION
  Report Type: Spontaneous
  Country: US (occurrence: US)
  Receive Date: 20161129
  Receipt Date: 20161129
  Transmission Date: 20170207
  Serious: No
  Sender: FDA-Public Use
  Company Number: US-PURDUE-USA-2016-0134131

PATIENT
  Sex: Female
  Weight: 53.97 kg

DRUGS (2)
  1. HYSINGLA ER [Suspect]
     Active Substance: HYDROCODONE BITARTRATE
     Dosage: 30 MG, BID
     Route: 048
  2. HYSINGLA ER [Suspect]
     Active Substance: HYDROCODONE BITARTRATE
     Indication: PAIN
     Dosage: 30 MG, Q24H
     Route: 048

REACTIONS (2)
  - Intentional product use issue [Unknown]
  - Drug effect decreased [Unknown]
